FAERS Safety Report 5600729-3 (Version None)
Quarter: 2008Q1

REPORT INFORMATION
  Report Type: 
  Country: None (occurrence: None)
  Receive Date: 20080123
  Receipt Date: 20080116
  Transmission Date: 20080703
  Serious: Yes (Hospitalization, Other)
  Sender: FDA-Public Use
  Company Number: US-MERCK-0801USA03504

PATIENT
  Age: 44 Year
  Sex: Female

DRUGS (1)
  1. VYTORIN [Suspect]
     Route: 048
     Dates: start: 20051101, end: 20070401

REACTIONS (2)
  - ARTERIOSCLEROSIS CORONARY ARTERY [None]
  - CORONARY ARTERY DISEASE [None]
